FAERS Safety Report 4851175-1 (Version None)
Quarter: 2005Q4

REPORT INFORMATION
  Report Type: 
  Country: None (occurrence: None)
  Receive Date: 20051212
  Receipt Date: 20051201
  Transmission Date: 20060501
  Serious: Yes (Hospitalization)
  Sender: FDA-Public Use
  Company Number: US-JNJFOC-20051200922

PATIENT
  Sex: Female
  Weight: 61.24 kg

DRUGS (21)
  1. INFLIXIMAB [Suspect]
     Indication: RHEUMATOID ARTHRITIS
     Route: 042
  2. ALLEGRA [Concomitant]
  3. FOLIC ACID [Concomitant]
  4. FOSAMAX [Concomitant]
  5. HYDROCHLOROTHIAZIDE [Concomitant]
  6. LISINOPRIL [Concomitant]
  7. MINOCYCLINE [Concomitant]
  8. PREDNISONE [Concomitant]
  9. SULFASALAZINE [Concomitant]
  10. BEXTRA [Concomitant]
  11. HERBAL SUPPLEMENT [Concomitant]
  12. OXYCODONE [Concomitant]
  13. FLONASE [Concomitant]
  14. MULTI-VITAMIN [Concomitant]
  15. MULTI-VITAMIN [Concomitant]
  16. MULTI-VITAMIN [Concomitant]
  17. MULTI-VITAMIN [Concomitant]
  18. MULTI-VITAMIN [Concomitant]
  19. MULTI-VITAMIN [Concomitant]
  20. MULTI-VITAMIN [Concomitant]
  21. MULTI-VITAMIN [Concomitant]

REACTIONS (2)
  - ABDOMINAL MASS [None]
  - METASTATIC MALIGNANT MELANOMA [None]
